FAERS Safety Report 8223088-9 (Version None)
Quarter: 2012Q1

REPORT INFORMATION
  Report Type: 
  Country: None (occurrence: None)
  Receive Date: 20120321
  Receipt Date: 20120315
  Transmission Date: 20120608
  Serious: No
  Sender: FDA-Public Use
  Company Number: US-BIOGENIDEC-2011BI035049

PATIENT
  Age: 28 Year
  Sex: Female

DRUGS (2)
  1. UNSPECIFIED MEDICATION [Concomitant]
  2. TYSABRI [Suspect]
     Indication: MULTIPLE SCLEROSIS
     Route: 042
     Dates: start: 20110806

REACTIONS (7)
  - PARAESTHESIA [None]
  - TREMOR [None]
  - HEADACHE [None]
  - VISION BLURRED [None]
  - FORMICATION [None]
  - NEURALGIA [None]
  - DISCOMFORT [None]
